FAERS Safety Report 4736360-1 (Version None)
Quarter: 2005Q3

REPORT INFORMATION
  Report Type: 
  Country: None (occurrence: None)
  Receive Date: 20050805
  Receipt Date: 20050805
  Transmission Date: 20060218
  Serious: Yes (Hospitalization, Other)
  Sender: FDA-Public Use
  Company Number: None

PATIENT
  Sex: Male
  Weight: 123.2 kg

DRUGS (7)
  1. CAPECITABINE [Suspect]
     Indication: RECTAL CANCER
     Dosage: SEE IMAGE
     Dates: start: 20050717, end: 20050725
  2. CAPECITABINE [Suspect]
     Indication: RECTAL CANCER
     Dosage: SEE IMAGE
     Dates: start: 20050725
  3. RADIATION [Suspect]
     Dosage: SEE IMAG
  4. OXALIPLATIN [Suspect]
     Dosage: SEE IMAGE
     Dates: start: 20050725, end: 20050725
  5. OXALIPLATIN [Suspect]
     Dosage: SEE IMAGE
     Route: 042
     Dates: start: 20050725, end: 20050725
  6. LEUCOVORIN [Suspect]
     Dosage: SEE IMAGE
  7. FLUOROURACIL [Suspect]
     Dosage: SEE IMAGE
     Route: 042
     Dates: start: 20050717, end: 20050725

REACTIONS (12)
  - ABDOMINAL PAIN [None]
  - ABDOMINAL TENDERNESS [None]
  - BLOOD GLUCOSE INCREASED [None]
  - CARDIOMEGALY [None]
  - COLITIS [None]
  - COMPUTERISED TOMOGRAM ABDOMEN ABNORMAL [None]
  - GASTROINTESTINAL HAEMORRHAGE [None]
  - HAEMORRHOIDS [None]
  - INTESTINAL MASS [None]
  - NEUTROPHIL COUNT INCREASED [None]
  - PROCTALGIA [None]
  - PROCTITIS [None]
